FAERS Safety Report 4438813-2 (Version None)
Quarter: 2004Q3

REPORT INFORMATION
  Report Type: 
  Country: None (occurrence: None)
  Receive Date: 20040901
  Receipt Date: 20040824
  Transmission Date: 20050211
  Serious: Yes (Hospitalization)
  Sender: FDA-Public Use
  Company Number: FR-BRISTOL-MYERS SQUIBB COMPANY-12681151

PATIENT
  Age: 62 Year
  Sex: Male

DRUGS (6)
  1. APROVEL [Suspect]
     Dosage: INCREASED TO 150 MG 2 X PER DAY
     Route: 048
     Dates: start: 20021015
  2. DIAMICRON [Suspect]
     Route: 048
     Dates: start: 20020416, end: 20040728
  3. HYPERIUM [Suspect]
     Route: 048
     Dates: start: 20021015
  4. NEXIUM [Suspect]
     Route: 048
     Dates: start: 20031215, end: 20040729
  5. LOXEN [Suspect]
     Route: 048
     Dates: start: 20030615
  6. XATRAL [Suspect]
     Dosage: INITIATED IN 2001, STOPPED THEN RE-INTRODUCED IN JUN-2002
     Route: 048
     Dates: start: 20010101

REACTIONS (6)
  - INFLUENZA LIKE ILLNESS [None]
  - LYMPHOPENIA [None]
  - NEUTROPENIA [None]
  - NORMOCHROMIC NORMOCYTIC ANAEMIA [None]
  - PANCYTOPENIA [None]
  - THROMBOCYTOPENIA [None]
